FAERS Safety Report 9663641 (Version 1)
Quarter: 2013Q4

REPORT INFORMATION
  Report Type: Spontaneous
  Country: US (occurrence: US)
  Receive Date: 20131101
  Receipt Date: 20131101
  Transmission Date: 20140711
  Serious: No
  Sender: FDA-Public Use
  Company Number: US-ENDO PHARMACEUTICALS INC.-CLOZ20110004

PATIENT
  Age: 66 Year
  Sex: Male
  Weight: 74.91 kg

DRUGS (2)
  1. CLONAZEPAM 1MG. ACCORD H [Suspect]
     Indication: INSOMNIA
     Route: 048
     Dates: start: 201003, end: 20110420
  2. CLONAZEPAM 0.5MG [Suspect]
     Indication: INSOMNIA
     Route: 048
     Dates: start: 20110421

REACTIONS (7)
  - Burning sensation [Not Recovered/Not Resolved]
  - Muscle spasms [Not Recovered/Not Resolved]
  - Dizziness [Not Recovered/Not Resolved]
  - Hypoaesthesia [Not Recovered/Not Resolved]
  - Amnesia [Not Recovered/Not Resolved]
  - Weight decreased [Not Recovered/Not Resolved]
  - Drug ineffective for unapproved indication [Not Recovered/Not Resolved]
